FAERS Safety Report 5136073-0 (Version None)
Quarter: 2006Q4

REPORT INFORMATION
  Report Type: 
  Country: None (occurrence: None)
  Receive Date: 20061027
  Receipt Date: 20060823
  Transmission Date: 20070319
  Serious: Yes (Other)
  Sender: FDA-Public Use
  Company Number: PHBS2006JP12860

PATIENT
  Age: 56 Year
  Sex: Female

DRUGS (11)
  1. ZOMETA [Suspect]
     Indication: METASTASES TO BONE
     Dosage: 4 MG, ONCE/SINGLE
     Route: 042
     Dates: start: 20060512, end: 20060512
  2. ZOMETA [Suspect]
     Dosage: 4 MG, ONCE/SINGLE
     Route: 042
     Dates: start: 20060609, end: 20060609
  3. ZOMETA [Suspect]
     Dosage: 4 MG, ONCE/SINGLE
     Route: 042
     Dates: start: 20060707, end: 20060707
  4. AREDIA [Suspect]
     Indication: METASTASES TO BONE
     Dosage: 90 MG, UNK
     Route: 042
     Dates: start: 20060303, end: 20060303
  5. AREDIA [Suspect]
     Dosage: 90 MG, ONCE/SINGLE
     Route: 042
     Dates: start: 20060407, end: 20060407
  6. FURTULON [Concomitant]
     Dosage: 800 MG/D
     Route: 048
     Dates: start: 20060412
  7. HYSRON [Concomitant]
     Dosage: 1200 MG/D
     Route: 048
     Dates: start: 20060412
  8. GASTER D [Concomitant]
     Dosage: 20 MG/D
     Route: 048
     Dates: start: 20060412
  9. DOGMATYL [Concomitant]
     Dosage: 450 MG/D
     Route: 048
     Dates: start: 20060412
  10. VOLTAREN [Concomitant]
     Dosage: 150 MG/D
     Route: 048
     Dates: start: 20060412
  11. HOCHUUEKKITOU [Concomitant]
     Dosage: 22.5 G/DAY
     Route: 048
     Dates: start: 20060412

REACTIONS (4)
  - BONE SWELLING [None]
  - OSTEOMYELITIS [None]
  - OSTEONECROSIS [None]
  - TOOTH EXTRACTION [None]
